FAERS Safety Report 9805276 (Version 1)
Quarter: 2014Q1

REPORT INFORMATION
  Report Type: Spontaneous
  Country: US (occurrence: None)
  Receive Date: 20140107
  Receipt Date: 20140107
  Transmission Date: 20141002
  Serious: Yes (Hospitalization)
  Sender: FDA-Public Use
  Company Number: None

PATIENT
  Age: 57 Year
  Sex: Male
  Weight: 136.4 kg

DRUGS (1)
  1. CLOZAPINE [Suspect]
     Indication: SCHIZOPHRENIA, PARANOID TYPE
     Dosage: AT BEDTIME
     Route: 048
     Dates: start: 20120228, end: 20120306

REACTIONS (4)
  - Hallucination, auditory [None]
  - Paranoia [None]
  - Agranulocytosis [None]
  - Influenza like illness [None]
